FAERS Safety Report 5746148-0 (Version None)
Quarter: 2008Q2

REPORT INFORMATION
  Report Type: 
  Country: None (occurrence: None)
  Receive Date: 20080520
  Receipt Date: 20080513
  Transmission Date: 20081010
  Serious: Yes (Death)
  Sender: FDA-Public Use
  Company Number: 2008SP009046

PATIENT
  Age: 74 Year
  Sex: Male
  Weight: 63 kg

DRUGS (4)
  1. TEMODAL [Suspect]
     Indication: MALIGNANT GLIOMA
     Dosage: 120 MG; QD; PO
     Route: 048
     Dates: start: 20080204, end: 20080316
  2. ZONISAMIDE [Suspect]
     Indication: EPILEPSY
     Dosage: 100 MG; BID; PO
     Route: 048
     Dates: start: 20080107, end: 20080411
  3. ZONISAMIDE [Suspect]
     Indication: PROPHYLAXIS
     Dosage: 100 MG; BID; PO
     Route: 048
     Dates: start: 20080107, end: 20080411
  4. NORVASC [Concomitant]

REACTIONS (4)
  - ANAEMIA [None]
  - LEUKOPENIA [None]
  - THROMBOCYTOPENIA [None]
  - TUMOUR HAEMORRHAGE [None]
